FAERS Safety Report 10285912 (Version 1)
Quarter: 2014Q3

REPORT INFORMATION
  Report Type: Spontaneous
  Country: US (occurrence: None)
  Receive Date: 20140703
  Receipt Date: 20140703
  Transmission Date: 20150326
  Serious: Yes (Hospitalization, Disabling, Other)
  Sender: FDA-Public Use
  Company Number: None

PATIENT
  Age: 38 Year
  Sex: Female
  Weight: 54.89 kg

DRUGS (1)
  1. METHYLCHLOROISOTHIAZOLINONE. [Suspect]
     Active Substance: METHYLCHLOROISOTHIAZOLINONE
     Indication: PRODUCT USED FOR UNKNOWN INDICATION
     Dates: start: 20140518, end: 20140525

REACTIONS (8)
  - Skin haemorrhage [None]
  - Skin exfoliation [None]
  - Dermatitis contact [None]
  - Swelling face [None]
  - Pain [None]
  - Reaction to preservatives [None]
  - Blister [None]
  - Emotional disorder [None]

NARRATIVE: CASE EVENT DATE: 20130518
